FAERS Safety Report 7938967-7 (Version None)
Quarter: 2011Q4

REPORT INFORMATION
  Report Type: 
  Country: None (occurrence: None)
  Receive Date: 20111124
  Receipt Date: 20111121
  Transmission Date: 20120403
  Serious: Yes (Other)
  Sender: FDA-Public Use
  Company Number: US-PFIZER INC-2011241967

PATIENT
  Sex: Female
  Weight: 104 kg

DRUGS (3)
  1. CHANTIX [Suspect]
     Dosage: UNK
     Route: 048
     Dates: start: 20110101, end: 20111003
  2. PROZAC [Concomitant]
     Indication: DEPRESSION
     Dosage: UNK
  3. CHANTIX [Suspect]
     Indication: SMOKING CESSATION THERAPY
     Dosage: 0.5 MG, 1X/DAY
     Route: 048
     Dates: start: 20110828, end: 20110101

REACTIONS (5)
  - INSOMNIA [None]
  - OROPHARYNGEAL BLISTERING [None]
  - ORAL MUCOSAL EXFOLIATION [None]
  - ABNORMAL DREAMS [None]
  - ABDOMINAL DISCOMFORT [None]
